FAERS Safety Report 6147216-4 (Version None)
Quarter: 2009Q2

REPORT INFORMATION
  Report Type: 
  Country: None (occurrence: None)
  Receive Date: 20090403
  Receipt Date: 20090326
  Transmission Date: 20091009
  Serious: Yes (Hospitalization, Other)
  Sender: FDA-Public Use
  Company Number: 2009-00676

PATIENT
  Age: 51 Year
  Sex: Female
  Weight: 76.9 kg

DRUGS (12)
  1. VELCADE [Suspect]
     Indication: MULTIPLE MYELOMA
     Dosage: 1.3 MG/M2,  INTRAVENOUS
     Route: 042
     Dates: start: 20081205
  2. THALIDOMIDE [Suspect]
     Indication: MULTIPLE MYELOMA
     Dosage: 100 MG
     Dates: start: 20090119
  3. DEXAMETHASONE [Suspect]
     Indication: MULTIPLE MYELOMA
     Dosage: 40 MG, ORAL
     Route: 048
     Dates: start: 20081201
  4. ALLOPURINOL [Concomitant]
  5. NORVASC [Concomitant]
  6. TUMS (CALCIUM CARBONATE) [Concomitant]
  7. CATAPRES [Concomitant]
  8. SYNTHROID [Concomitant]
  9. LOPRESSOR [Concomitant]
  10. NEPHRO-VITE RX (VITAMIN B NOS, FOLIC ACID) [Concomitant]
  11. PRILOSEC [Concomitant]
  12. AMBIEN [Concomitant]

REACTIONS (6)
  - CATHETER RELATED INFECTION [None]
  - CENTRAL LINE INFECTION [None]
  - RENAL IMPAIRMENT [None]
  - STEVENS-JOHNSON SYNDROME [None]
  - TOXIC EPIDERMAL NECROLYSIS [None]
  - WOUND INFECTION STAPHYLOCOCCAL [None]
